FAERS Safety Report 12895481 (Version 2)
Quarter: 2017Q1

REPORT INFORMATION
  Report Type: Spontaneous
  Country: US (occurrence: US)
  Receive Date: 20161030
  Receipt Date: 20170105
  Transmission Date: 20170428
  Serious: No
  Sender: FDA-Public Use
  Company Number: US-ASTRAZENECA-2016SF12733

PATIENT
  Age: 67 Year
  Sex: Male
  Weight: 84 kg

DRUGS (27)
  1. NAPROXEN. [Concomitant]
     Active Substance: NAPROXEN
     Dosage: UNK, AS NEEDED (2 TIMES PER WEEK.)
  2. METOPROLOL. [Concomitant]
     Active Substance: METOPROLOL
     Indication: HYPERTENSION
     Dosage: UNK
     Route: 048
     Dates: start: 2010
  3. ALLOPURINOL. [Concomitant]
     Active Substance: ALLOPURINOL
     Indication: ARTHRITIS
     Dosage: 100 MG, 1X/DAY
     Route: 048
     Dates: start: 2014
  4. SULFASALAZINE. [Concomitant]
     Active Substance: SULFASALAZINE
     Indication: DIVERTICULITIS
     Dosage: 500 MG, 2X/DAY, ONE TABLET ORALLY AFTER TWO MEALS A DAY
     Route: 048
     Dates: start: 2014
  5. NEXIUM 24HR [Suspect]
     Active Substance: ESOMEPRAZOLE MAGNESIUM
     Indication: GASTROOESOPHAGEAL REFLUX DISEASE
     Route: 048
     Dates: start: 2016, end: 20161210
  6. AMLODIPINE BESYLATE. [Concomitant]
     Active Substance: AMLODIPINE BESYLATE
     Indication: HYPERTENSION
     Route: 048
  7. ALLOPURINOL. [Concomitant]
     Active Substance: ALLOPURINOL
     Indication: GOUT
     Route: 048
  8. ALLOPURINOL. [Concomitant]
     Active Substance: ALLOPURINOL
     Indication: ARTHRITIS
     Route: 048
  9. IBUPROFEN. [Concomitant]
     Active Substance: IBUPROFEN
     Dosage: UNK, AS NEEDED (2 TIMES PER WEEK)
  10. METOPROLOL. [Concomitant]
     Active Substance: METOPROLOL
     Indication: HYPERTENSION
     Route: 048
  11. SULFASALAZINE. [Concomitant]
     Active Substance: SULFASALAZINE
     Indication: IRRITABLE BOWEL SYNDROME
     Dosage: 500 MG, 2X/DAY, ONE TABLET ORALLY AFTER TWO MEALS A DAY
     Route: 048
     Dates: start: 2014
  12. SULFASALAZINE. [Concomitant]
     Active Substance: SULFASALAZINE
     Indication: ARTHRITIS
     Dosage: 500 MG, 2X/DAY, ONE TABLET ORALLY AFTER TWO MEALS A DAY
     Route: 048
     Dates: start: 2014
  13. SULFASALAZINE. [Concomitant]
     Active Substance: SULFASALAZINE
     Indication: ARTHRALGIA
     Dosage: 100 MG, 1X/DAY
     Route: 048
     Dates: start: 2014
  14. SULFASALAZINE. [Concomitant]
     Active Substance: SULFASALAZINE
     Indication: ARTHRITIS
     Dosage: 100 MG, 1X/DAY
     Route: 048
     Dates: start: 2014
  15. CALCIUM CITRATE W/MAGNESIUM [Concomitant]
     Indication: SUPPLEMENTATION THERAPY
     Route: 048
  16. NEXIUM 24HR [Suspect]
     Active Substance: ESOMEPRAZOLE MAGNESIUM
     Indication: GASTROOESOPHAGEAL REFLUX DISEASE
     Route: 048
     Dates: start: 2015
  17. NEXIUM 24HR [Suspect]
     Active Substance: ESOMEPRAZOLE MAGNESIUM
     Indication: HIATUS HERNIA
     Route: 048
     Dates: start: 2016
  18. NEXIUM 24HR [Suspect]
     Active Substance: ESOMEPRAZOLE MAGNESIUM
     Indication: GASTROOESOPHAGEAL REFLUX DISEASE
     Route: 048
     Dates: start: 2016
  19. AMLODIPINE BESYLATE. [Concomitant]
     Active Substance: AMLODIPINE BESYLATE
     Indication: HYPERTENSION
     Dosage: 10 MG, 1X/DAY
     Route: 048
     Dates: start: 2012
  20. NEXIUM 24HR [Suspect]
     Active Substance: ESOMEPRAZOLE MAGNESIUM
     Indication: HIATUS HERNIA
     Route: 048
     Dates: start: 2016, end: 20161210
  21. SULFASALAZINE. [Concomitant]
     Active Substance: SULFASALAZINE
     Indication: DIVERTICULITIS
     Dosage: 100 MG, 1X/DAY
     Route: 048
     Dates: start: 2014
  22. NEXIUM 24HR [Suspect]
     Active Substance: ESOMEPRAZOLE MAGNESIUM
     Indication: HIATUS HERNIA
     Route: 048
     Dates: start: 2015
  23. ALLOPURINOL. [Concomitant]
     Active Substance: ALLOPURINOL
     Indication: GOUT
     Dosage: 100 MG, 1X/DAY
     Route: 048
     Dates: start: 2014
  24. SULFASALAZINE. [Concomitant]
     Active Substance: SULFASALAZINE
     Indication: ARTHRALGIA
     Dosage: 500 MG, 2X/DAY, ONE TABLET ORALLY AFTER TWO MEALS A DAY
     Route: 048
     Dates: start: 2014
  25. SULFASALAZINE. [Concomitant]
     Active Substance: SULFASALAZINE
     Indication: IRRITABLE BOWEL SYNDROME
     Dosage: 100 MG, 1X/DAY
     Route: 048
     Dates: start: 2014
  26. VITAMIN D [Concomitant]
     Active Substance: CHOLECALCIFEROL
     Indication: SUPPLEMENTATION THERAPY
     Dosage: 2000 IU, DAILY, ONE SOFT GEL
     Route: 048
     Dates: start: 2016
  27. CALCIUM CITRATE W/MAGNESIUM [Concomitant]
     Indication: SUPPLEMENTATION THERAPY
     Dosage: UNK
     Route: 048
     Dates: start: 2012

REACTIONS (10)
  - Condition aggravated [Not Recovered/Not Resolved]
  - Dry mouth [Unknown]
  - Pollakiuria [Not Recovered/Not Resolved]
  - Vitamin D decreased [Recovered/Resolved]
  - Inner ear disorder [Unknown]
  - Dizziness [Unknown]
  - Peripheral swelling [Unknown]
  - Arthralgia [Not Recovered/Not Resolved]
  - Product use issue [Recovered/Resolved]
  - Myalgia [Not Recovered/Not Resolved]

NARRATIVE: CASE EVENT DATE: 2015
